FAERS Safety Report 4852054-6 (Version None)
Quarter: 2005Q4

REPORT INFORMATION
  Report Type: 
  Country: None (occurrence: None)
  Receive Date: 20051213
  Receipt Date: 20020412
  Transmission Date: 20060501
  Serious: Yes (Hospitalization)
  Sender: FDA-Public Use
  Company Number: US-ROCHE-311354

PATIENT
  Age: 44 Year
  Sex: Female
  Weight: 72.6 kg

DRUGS (7)
  1. PEG-INTERFERON ALFA 2A (RO 25-8310) [Suspect]
     Route: 058
     Dates: start: 20020401, end: 20020411
  2. RIBAVIRIN [Suspect]
     Dosage: WITH FOOD.
     Route: 048
     Dates: start: 20020401, end: 20020411
  3. VIRACEPT [Concomitant]
     Dates: start: 20011001
  4. COMBIVIR [Concomitant]
     Dates: start: 20011001
  5. COMBIVENT [Concomitant]
     Dates: start: 20011001
  6. PAXIL [Concomitant]
     Dates: start: 20011001
  7. NORVASC [Concomitant]
     Dates: start: 20011001

REACTIONS (5)
  - ASTHENIA [None]
  - CEREBRAL DISORDER [None]
  - GAIT DISTURBANCE [None]
  - PAIN [None]
  - VISION BLURRED [None]
